FAERS Safety Report 8342356 (Version 3)
Quarter: 2013Q1

REPORT INFORMATION
  Report Type: Spontaneous
  Country: US (occurrence: US)
  Receive Date: 20120118
  Receipt Date: 20130125
  Transmission Date: 20140127
  Serious: No
  Sender: FDA-Public Use
  Company Number: US-ELI_LILLY_AND_COMPANY-US201201004141

PATIENT
  Sex: Female
  Weight: 81.63 kg

DRUGS (2)
  1. HUMALOG LISPRO [Suspect]
     Indication: DIABETES MELLITUS
     Dosage: 48 U, QD
     Route: 058
     Dates: start: 201105
  2. HUMALOG LISPRO [Suspect]
     Dosage: UNK, TID
     Route: 058

REACTIONS (2)
  - Hyperglycaemia [Recovered/Resolved]
  - Drug ineffective [Recovered/Resolved]
